FAERS Safety Report 5436025-7 (Version None)
Quarter: 2007Q3

REPORT INFORMATION
  Report Type: 
  Country: None (occurrence: None)
  Receive Date: 20070831
  Receipt Date: 20070824
  Transmission Date: 20080115
  Serious: Yes (Hospitalization)
  Sender: FDA-Public Use
  Company Number: B0481624A

PATIENT
  Age: 33 Year
  Sex: Female

DRUGS (6)
  1. EPIVIR [Suspect]
     Route: 048
  2. ZIDOVUDINE [Suspect]
     Route: 048
  3. NELFINAVIR [Suspect]
     Route: 048
  4. TOCOLYTIC AGENTS [Suspect]
  5. ANTIBIOTICS [Suspect]
  6. STEROIDS [Suspect]

REACTIONS (4)
  - DRUG EXPOSURE DURING PREGNANCY [None]
  - PREMATURE LABOUR [None]
  - PULMONARY EMBOLISM [None]
  - PULMONARY THROMBOSIS [None]
